FAERS Safety Report 9382345 (Version 2)
Quarter: 2013Q3

REPORT INFORMATION
  Report Type: Spontaneous
  Country: RU (occurrence: RU)
  Receive Date: 20130703
  Receipt Date: 20130708
  Transmission Date: 20140515
  Serious: Yes (Hospitalization)
  Sender: FDA-Public Use
  Company Number: RU-GLAXOSMITHKLINE-B0904544A

PATIENT
  Age: 31 Year
  Sex: Male
  Weight: 72 kg

DRUGS (6)
  1. BENLYSTA [Suspect]
     Indication: SYSTEMIC LUPUS ERYTHEMATOSUS
     Dosage: 800MG PER DAY
     Route: 042
     Dates: start: 20130607, end: 20130624
  2. METYPRED [Concomitant]
     Indication: SYSTEMIC LUPUS ERYTHEMATOSUS
     Dosage: 12MG PER DAY
     Route: 048
     Dates: start: 2011
  3. CELLCEPT [Concomitant]
     Indication: DEEP VEIN THROMBOSIS
     Dosage: 2G PER DAY
     Route: 048
     Dates: start: 2012
  4. UNKNOWN DRUG [Concomitant]
     Dosage: 50MG PER DAY
     Route: 048
  5. DIUVER [Concomitant]
     Dosage: 10MG PER DAY
     Route: 048
  6. CRESTOR [Concomitant]
     Indication: HYPERLIPIDAEMIA
     Dosage: 20MG PER DAY
     Route: 048

REACTIONS (3)
  - Blood creatinine increased [Recovered/Resolved]
  - Blood urea increased [Recovered/Resolved]
  - Red blood cell sedimentation rate increased [Recovered/Resolved]
